FAERS Safety Report 8807915 (Version 1)
Quarter: 2012Q4

REPORT INFORMATION
  Report Type: 
  Country: US (occurrence: US)
  Receive Date: 20120925
  Receipt Date: 20120925
  Transmission Date: 20130627
  Serious: Yes (Death, Other)
  Sender: FDA-Public Use
  Company Number: US-ROCHE-1104366

PATIENT
  Sex: Male

DRUGS (4)
  1. AVASTIN [Suspect]
     Indication: MALIGNANT RESPIRATORY TRACT NEOPLASM
     Route: 065
     Dates: start: 20050818, end: 20050929
  2. TAXOL [Concomitant]
     Route: 065
     Dates: start: 20040128, end: 20040615
  3. TAXOL [Concomitant]
     Route: 065
     Dates: start: 20050602
  4. TAXOL [Concomitant]
     Route: 065
     Dates: start: 20050818

REACTIONS (2)
  - Death [Fatal]
  - Disease progression [Unknown]
